FAERS Safety Report 24282366 (Version 1)
Quarter: 2024Q3

REPORT INFORMATION
  Report Type: Spontaneous
  Country: FR (occurrence: FR)
  Receive Date: 20240904
  Receipt Date: 20240904
  Transmission Date: 20241016
  Serious: Yes (Hospitalization, Other)
  Sender: PFIZER
  Company Number: None

PATIENT
  Age: 19 Year
  Sex: Female
  Weight: 71 kg

DRUGS (8)
  1. METHOTREXATE SODIUM [Suspect]
     Active Substance: METHOTREXATE SODIUM
     Indication: Desmoid tumour
     Dosage: 30.00 MG/M2 -10%, OR 46.76 MG
     Route: 042
     Dates: start: 20230928, end: 20240722
  2. ETHINYL ESTRADIOL\LEVONORGESTREL [Suspect]
     Active Substance: ETHINYL ESTRADIOL\LEVONORGESTREL
     Indication: Contraception
     Dosage: 1 TABLET, DAILY
     Route: 048
     Dates: start: 20210101, end: 20240727
  3. VINORELBINE [Suspect]
     Active Substance: VINORELBINE TARTRATE
     Indication: Desmoid tumour
     Dosage: 20.00 MG/M2 REDUCTION OF 20.00% OR 27.70 MG
     Route: 042
     Dates: start: 20230928, end: 20240722
  4. CHLORHEXIDINE GLUCONATE [Concomitant]
     Active Substance: CHLORHEXIDINE GLUCONATE
     Dosage: UNK, 3-4 PER DAY
  5. COSMETICS [Concomitant]
     Active Substance: COSMETICS
     Dosage: UNK
  6. ATARAX [Concomitant]
     Active Substance: HYDROXYZINE HYDROCHLORIDE
     Indication: Anxiety
     Dosage: 25MG, IN THE MORNING BEFORE TREATMENTS IF ANXIETY
  7. ONDANSETRON [Concomitant]
     Active Substance: ONDANSETRON
     Indication: Nausea
     Dosage: 8 MG, 2X/DAY, MORNING AND EVENING FOR 48 HOURS THEN IF NAUSEA
  8. DOLIPRANE [Concomitant]
     Active Substance: ACETAMINOPHEN
     Indication: Pain
     Dosage: 1000 MG, IF PAIN, MAX 4/DAY

REACTIONS (3)
  - Pulmonary infarction [Not Recovered/Not Resolved]
  - Pulmonary embolism [Not Recovered/Not Resolved]
  - Off label use [Unknown]

NARRATIVE: CASE EVENT DATE: 20230928
